FAERS Safety Report 15192119 (Version 2)
Quarter: 2018Q3

REPORT INFORMATION
  Report Type: Spontaneous
  Country: VN (occurrence: VN)
  Receive Date: 20180724
  Receipt Date: 20180727
  Transmission Date: 20181010
  Serious: Yes (Other)
  Sender: FDA-Public Use
  Company Number: VN-GEHC-2018CSU002820

PATIENT

DRUGS (1)
  1. OMNIPAQUE [Suspect]
     Active Substance: IOHEXOL
     Indication: HAEMOPTYSIS
     Dosage: 90 ML, SINGLE
     Route: 042
     Dates: start: 20180720, end: 20180720

REACTIONS (3)
  - Seizure [Unknown]
  - Aggression [Unknown]
  - Heart rate increased [Unknown]

NARRATIVE: CASE EVENT DATE: 20180720
